FAERS Safety Report 11965691 (Version 2)
Quarter: 2016Q1

REPORT INFORMATION
  Report Type: Spontaneous
  Country: JP (occurrence: JP)
  Receive Date: 20160127
  Receipt Date: 20160318
  Transmission Date: 20160526
  Serious: Yes (Life-Threatening)
  Sender: FDA-Public Use
  Company Number: JP-BAXTER-2016BAX003918

PATIENT
  Age: 63 Year
  Sex: Female

DRUGS (14)
  1. CELLTOP 100 MG/5 ML, SOLUTION INJECTABLE POUR PERFUSION [Suspect]
     Active Substance: ETOPOSIDE
     Indication: BONE MARROW CONDITIONING REGIMEN
     Dosage: 250 MG/M2
     Route: 041
     Dates: start: 20151207
  2. CELLTOP 100 MG/5 ML, SOLUTION INJECTABLE POUR PERFUSION [Suspect]
     Active Substance: ETOPOSIDE
     Indication: OFF LABEL USE
     Dosage: 250 MG/M2
     Route: 041
     Dates: start: 20151208
  3. ENDOXAN 1G [Suspect]
     Active Substance: CYCLOPHOSPHAMIDE
     Indication: BONE MARROW CONDITIONING REGIMEN
     Dosage: 60 MG/KG
     Route: 041
     Dates: start: 20151207
  4. ENDOXAN 1G [Suspect]
     Active Substance: CYCLOPHOSPHAMIDE
     Dosage: 60 MG/KG
     Route: 041
     Dates: start: 20151208, end: 20151208
  5. ALKERAN [Suspect]
     Active Substance: MELPHALAN
     Indication: BONE MARROW CONDITIONING REGIMEN
     Dosage: 130 MG/M2
     Route: 041
     Dates: start: 20151210, end: 20151210
  6. DIFLUCAN [Concomitant]
     Active Substance: FLUCONAZOLE
     Indication: PRODUCT USED FOR UNKNOWN INDICATION
     Route: 065
  7. BAKTAR [Concomitant]
     Active Substance: SULFAMETHOXAZOLE\TRIMETHOPRIM
     Indication: PRODUCT USED FOR UNKNOWN INDICATION
     Route: 048
  8. CALONAL [Concomitant]
     Active Substance: ACETAMINOPHEN
     Indication: PRODUCT USED FOR UNKNOWN INDICATION
     Route: 065
  9. EMEND [Concomitant]
     Active Substance: APREPITANT
     Indication: PRODUCT USED FOR UNKNOWN INDICATION
     Route: 048
  10. CELLTOP 100 MG/5 ML, SOLUTION INJECTABLE POUR PERFUSION [Suspect]
     Active Substance: ETOPOSIDE
     Dosage: 250 MG/M2
     Route: 041
     Dates: start: 20151209, end: 20151210
  11. LANSOPRAZOLE. [Concomitant]
     Active Substance: LANSOPRAZOLE
     Indication: PRODUCT USED FOR UNKNOWN INDICATION
     Route: 065
  12. TEPRENONE [Concomitant]
     Active Substance: TEPRENONE
     Indication: PRODUCT USED FOR UNKNOWN INDICATION
     Route: 048
  13. MAGMITT [Concomitant]
     Active Substance: MAGNESIUM OXIDE
     Indication: PRODUCT USED FOR UNKNOWN INDICATION
     Route: 048
  14. PANTETHINE [Concomitant]
     Active Substance: PANTETHINE
     Indication: PRODUCT USED FOR UNKNOWN INDICATION
     Route: 048

REACTIONS (5)
  - Metabolic acidosis [Recovering/Resolving]
  - Hypovolaemic shock [Recovering/Resolving]
  - Hypokalaemia [Unknown]
  - Hypoalbuminaemia [Unknown]
  - Diarrhoea [Recovering/Resolving]

NARRATIVE: CASE EVENT DATE: 20151212
